FAERS Safety Report 23460162 (Version 3)
Quarter: 2024Q4

REPORT INFORMATION
  Report Type: Spontaneous
  Country: US (occurrence: US)
  Receive Date: 20240131
  Receipt Date: 20241024
  Transmission Date: 20250115
  Serious: Yes (Other)
  Sender: SANOFI AVENTIS
  Company Number: US-SA-SAC20240130000032

PATIENT
  Sex: Female
  Weight: 92.9 kg

DRUGS (7)
  1. DUPIXENT [Suspect]
     Active Substance: DUPILUMAB
     Indication: Eosinophilic oesophagitis
     Dosage: 300 MG, QW
     Route: 058
  2. TRAMADOL HCL [Concomitant]
     Active Substance: TRAMADOL HYDROCHLORIDE
     Dosage: UNK
  3. AMITIZA [Concomitant]
     Active Substance: LUBIPROSTONE
  4. SINGULAIR [Concomitant]
     Active Substance: MONTELUKAST SODIUM
  5. DIOVAN [Concomitant]
     Active Substance: VALSARTAN
  6. PROBIOTICS NOS [Concomitant]
     Active Substance: PROBIOTICS NOS
  7. PROBIOTIC 10 BILLION DAILY MAINTENANCE [Concomitant]

REACTIONS (3)
  - Choking [Unknown]
  - Feeding disorder [Unknown]
  - Eosinophilic oesophagitis [Unknown]
